FAERS Safety Report 14894405 (Version 1)
Quarter: 2018Q2

REPORT INFORMATION
  Report Type: Spontaneous
  Country: BR (occurrence: BR)
  Receive Date: 20180515
  Receipt Date: 20180515
  Transmission Date: 20180711
  Serious: Yes (Other)
  Sender: FDA-Public Use
  Company Number: BR-SUN PHARMACEUTICAL INDUSTRIES LTD-2018RR-172690

PATIENT
  Age: 55 Year
  Sex: Female

DRUGS (8)
  1. CAPECITABINE. [Suspect]
     Active Substance: CAPECITABINE
     Indication: ADENOCARCINOMA
     Dosage: 850 MG/M2, BID, FROM DAY 1 TO DAY 14, 6 CYCLES
     Route: 048
  2. DOCETAXEL. [Suspect]
     Active Substance: DOCETAXEL
     Indication: ADENOCARCINOMA
     Dosage: 30 MG/M2, ON DAY 1, 6 CYCLES
     Route: 033
  3. CALCIUM FOLINAT [Suspect]
     Active Substance: LEUCOVORIN CALCIUM
     Indication: ADENOCARCINOMA
     Dosage: 6 CYCLES
     Route: 065
  4. OXALIPLATIN. [Suspect]
     Active Substance: OXALIPLATIN
     Indication: ADENOCARCINOMA
     Dosage: 6 CYCLES
     Route: 065
  5. CISPLATIN. [Suspect]
     Active Substance: CISPLATIN
     Dosage: 30 MG/M2, ON DAY 8, 6 CYCLES
     Route: 042
  6. CISPLATIN. [Suspect]
     Active Substance: CISPLATIN
     Indication: ADENOCARCINOMA
     Dosage: 30 MG/M2, ON DAY 1, 6 CYCLES
     Route: 033
  7. DOCETAXEL. [Suspect]
     Active Substance: DOCETAXEL
     Dosage: 30 MG/M2, ON DAY 8, 6 CYCLES
     Route: 042
  8. FLUOROURACIL. [Suspect]
     Active Substance: FLUOROURACIL
     Indication: ADENOCARCINOMA
     Dosage: 6 CYCLES
     Route: 065

REACTIONS (12)
  - Nausea [Unknown]
  - Drug ineffective [Unknown]
  - Fatigue [Unknown]
  - Abdominal pain [Unknown]
  - Alopecia [Unknown]
  - Decreased appetite [Unknown]
  - Vomiting [Unknown]
  - Drug effect incomplete [Unknown]
  - Chemical peritonitis [Unknown]
  - Upper respiratory tract infection [Unknown]
  - Myalgia [Unknown]
  - Neuropathy peripheral [Unknown]
